FAERS Safety Report 23999271 (Version 2)
Quarter: 2024Q3

REPORT INFORMATION
  Report Type: Spontaneous
  Country: US (occurrence: US)
  Receive Date: 20240621
  Receipt Date: 20240813
  Transmission Date: 20241017
  Serious: Yes (Hospitalization, Other)
  Sender: RANBAXY
  Company Number: US-SUN PHARMACEUTICAL INDUSTRIES LTD-2024R1-451667

PATIENT
  Sex: Male

DRUGS (1)
  1. BUPRENORPHINE [Suspect]
     Active Substance: BUPRENORPHINE
     Indication: Withdrawal syndrome
     Dosage: 1 MILLIGRAM, BID
     Route: 064

REACTIONS (7)
  - Drug withdrawal syndrome neonatal [Unknown]
  - Ichthyosis [Recovered/Resolved]
  - Generalised tonic-clonic seizure [Recovered/Resolved]
  - Streptococcal infection [Recovered/Resolved]
  - Serratia bacteraemia [Recovered/Resolved]
  - Premature delivery [Unknown]
  - Foetal exposure during pregnancy [Unknown]
